FAERS Safety Report 7368472-0 (Version None)
Quarter: 2011Q1

REPORT INFORMATION
  Report Type: 
  Country: None (occurrence: None)
  Receive Date: 20110317
  Receipt Date: 20110317
  Transmission Date: 20110831
  Serious: Yes (Life-Threatening)
  Sender: FDA-Public Use
  Company Number: None

PATIENT
  Age: 65 Year
  Sex: Male
  Weight: 88 kg

DRUGS (1)
  1. NALOXONE [Suspect]
     Indication: REVERSAL OF OPIATE ACTIVITY
     Dosage: 0.4 MG ONCE IV
     Route: 042
     Dates: start: 20110130, end: 20110130

REACTIONS (5)
  - DYSPNOEA [None]
  - TONGUE SPASM [None]
  - STRIDOR [None]
  - PSYCHOMOTOR HYPERACTIVITY [None]
  - TREMOR [None]
